FAERS Safety Report 5481432-X (Version None)
Quarter: 2007Q4

REPORT INFORMATION
  Report Type: 
  Country: None (occurrence: None)
  Receive Date: 20071010
  Receipt Date: 20071005
  Transmission Date: 20080405
  Serious: Yes (Death, Hospitalization)
  Sender: FDA-Public Use
  Company Number: B0489816A

PATIENT
  Age: 51 Year
  Sex: Female
  Weight: 68 kg

DRUGS (6)
  1. TYKERB [Suspect]
     Dosage: 1250MG PER DAY
     Route: 048
     Dates: start: 20070608, end: 20070920
  2. CAPECITABINE [Suspect]
     Dosage: 2000MG PER DAY
     Route: 048
     Dates: start: 20070608, end: 20070920
  3. TERALITHE [Suspect]
     Indication: DEPRESSION
     Route: 048
     Dates: start: 20070101, end: 20070101
  4. SKENAN [Suspect]
     Route: 048
     Dates: start: 20070101, end: 20070101
  5. NOCTAMIDE [Suspect]
     Indication: INSOMNIA
     Route: 048
     Dates: start: 20070101, end: 20070101
  6. INEXIUM [Suspect]
     Route: 048
     Dates: start: 20070101, end: 20070101

REACTIONS (8)
  - BLOOD BILIRUBIN INCREASED [None]
  - CYTOLYTIC HEPATITIS [None]
  - ENCEPHALOPATHY [None]
  - FEBRILE NEUTROPENIA [None]
  - JAUNDICE CHOLESTATIC [None]
  - SEPSIS [None]
  - TACHYCARDIA [None]
  - TRANSAMINASES INCREASED [None]
